FAERS Safety Report 20596820 (Version 4)
Quarter: 2022Q4

REPORT INFORMATION
  Report Type: Other
  Country: CN (occurrence: None)
  Receive Date: 20220315
  Receipt Date: 20221228
  Transmission Date: 20230112
  Serious: Yes (Hospitalization)
  Sender: FDA-Public Use
  Company Number: CN-ROCHE-3044165

PATIENT
  Age: 58 Year
  Sex: Female
  Weight: 65 kg

DRUGS (2)
  1. CAPECITABINE [Suspect]
     Active Substance: CAPECITABINE
     Indication: Breast cancer metastatic
     Dosage: 2000 MG/M2/D EVERY 12 HOURS, CONTINUOUSLY FOR 14 DAYS, REST FOR 7 DAYS, 21 DAYS FOR ONE CYCLE
     Route: 048
     Dates: start: 20220111, end: 20220214
  2. LAPATINIB [Suspect]
     Active Substance: LAPATINIB
     Indication: Breast cancer metastatic
     Route: 048
     Dates: start: 20220111, end: 20220111

REACTIONS (1)
  - Hypokinesia [Recovered/Resolved with Sequelae]

NARRATIVE: CASE EVENT DATE: 20220221
